FAERS Safety Report 15778101 (Version 3)
Quarter: 2019Q1

REPORT INFORMATION
  Report Type: Spontaneous
  Country: US (occurrence: US)
  Receive Date: 20181231
  Receipt Date: 20190131
  Transmission Date: 20190417
  Serious: Yes (Other)
  Sender: FDA-Public Use
  Company Number: US-AKORN PHARMACEUTICALS-2018AKN02077

PATIENT
  Age: 15 Year
  Sex: Female
  Weight: 68.93 kg

DRUGS (3)
  1. YAZ [Concomitant]
     Active Substance: DROSPIRENONE\ETHINYL ESTRADIOL
  2. MYORISAN [Suspect]
     Active Substance: ISOTRETINOIN
     Indication: ACNE
     Dosage: 40 MG, 1X/DAY
     Dates: start: 20181114, end: 201812
  3. MYORISAN [Suspect]
     Active Substance: ISOTRETINOIN
     Indication: ACNE
     Dosage: 60 MG, 1X/DAY
     Dates: start: 20180628, end: 201811

REACTIONS (4)
  - Stress [Unknown]
  - Off label use [Recovered/Resolved]
  - Inappropriate affect [Unknown]
  - Affect lability [Unknown]

NARRATIVE: CASE EVENT DATE: 2018
